APPROVED DRUG PRODUCT: PROCAINAMIDE HYDROCHLORIDE
Active Ingredient: PROCAINAMIDE HYDROCHLORIDE
Strength: 500MG/ML
Dosage Form/Route: INJECTABLE;INJECTION
Application: A089537 | Product #001
Applicant: HOSPIRA INC
Approved: Aug 25, 1987 | RLD: No | RS: No | Type: DISCN